FAERS Safety Report 4720986-5 (Version None)
Quarter: 2005Q3

REPORT INFORMATION
  Report Type: 
  Country: None (occurrence: None)
  Receive Date: 20050719
  Receipt Date: 20041012
  Transmission Date: 20060218
  Serious: Yes (Hospitalization, Other)
  Sender: FDA-Public Use
  Company Number: 2004238772US

PATIENT
  Age: 89 Year
  Sex: Male
  Weight: 63.5 kg

DRUGS (1)
  1. CELEBREX [Suspect]
     Indication: ARTHRITIS
     Dosage: QD, ORAL
     Route: 048
     Dates: start: 20040101, end: 20041001

REACTIONS (4)
  - DIARRHOEA HAEMORRHAGIC [None]
  - ULCER HAEMORRHAGE [None]
  - VOMITING [None]
  - WEIGHT DECREASED [None]
